FAERS Safety Report 5453919-7 (Version None)
Quarter: 2007Q3

REPORT INFORMATION
  Report Type: 
  Country: None (occurrence: None)
  Receive Date: 20070917
  Receipt Date: 20070531
  Transmission Date: 20080115
  Serious: Yes (Hospitalization, Other)
  Sender: FDA-Public Use
  Company Number: US-PURDUE-USA_2007_0029165

PATIENT
  Sex: Male

DRUGS (1)
  1. OXYCONTIN [Suspect]
     Indication: DRUG USE FOR UNKNOWN INDICATION
     Dosage: UNK MG, UNK
     Route: 048
     Dates: start: 19990201, end: 20020101

REACTIONS (5)
  - BLISTER [None]
  - LOSS OF CONSCIOUSNESS [None]
  - POOR PERIPHERAL CIRCULATION [None]
  - SENSORY LOSS [None]
  - THERMAL BURN [None]
